FAERS Safety Report 5549729-2 (Version None)
Quarter: 2007Q4

REPORT INFORMATION
  Report Type: 
  Country: None (occurrence: None)
  Receive Date: 20071210
  Receipt Date: 20071127
  Transmission Date: 20080405
  Serious: Yes (Death)
  Sender: FDA-Public Use
  Company Number: 2007-03936

PATIENT
  Age: 68 Year
  Sex: Female

DRUGS (4)
  1. VELCADE [Suspect]
     Indication: MULTIPLE MYELOMA
  2. REVLIMID [Suspect]
     Indication: MULTIPLE MYELOMA
     Dosage: 15.00 MG, 5.00 MG
     Dates: start: 20060825
  3. REVLIMID [Suspect]
     Indication: MULTIPLE MYELOMA
     Dosage: 15.00 MG, 5.00 MG
     Dates: start: 20071121
  4. DECADRON [Suspect]
     Indication: DRUG USE FOR UNKNOWN INDICATION

REACTIONS (3)
  - MALIGNANT NEOPLASM PROGRESSION [None]
  - MULTIPLE MYELOMA [None]
  - TRANSPLANT FAILURE [None]
